FAERS Safety Report 4917845-1 (Version None)
Quarter: 2006Q1

REPORT INFORMATION
  Report Type: 
  Country: None (occurrence: None)
  Receive Date: 20060214
  Receipt Date: 20060201
  Transmission Date: 20060701
  Serious: Yes (Hospitalization)
  Sender: FDA-Public Use
  Company Number: 2006018151

PATIENT
  Age: 55 Year
  Sex: Male
  Weight: 97 kg

DRUGS (1)
  1. SU-011,248 [Suspect]
     Indication: RENAL CELL CARCINOMA STAGE UNSPECIFIED
     Dosage: 50 MG (50 MG, 1 DAILY INTERVAL: EVERYDAY), ORAL
     Route: 048
     Dates: start: 20060130, end: 20060130

REACTIONS (3)
  - DIZZINESS [None]
  - HAEMATEMESIS [None]
  - LOSS OF CONSCIOUSNESS [None]
